FAERS Safety Report 6633866-5 (Version None)
Quarter: 2010Q1

REPORT INFORMATION
  Report Type: 
  Country: None (occurrence: None)
  Receive Date: 20100315
  Receipt Date: 20100302
  Transmission Date: 20100710
  Serious: Yes (Hospitalization, Other)
  Sender: FDA-Public Use
  Company Number: US-ELI_LILLY_AND_COMPANY-US201003001401

PATIENT
  Sex: Male

DRUGS (3)
  1. HUMATROPE [Suspect]
     Dosage: 0.05 MG, DAILY (1/D)
  2. HYDROCORTISONE [Concomitant]
  3. VANCOMYCIN [Concomitant]

REACTIONS (8)
  - CELLULITIS [None]
  - CEREBROVASCULAR ACCIDENT [None]
  - EXOSTOSIS [None]
  - FINGER DEFORMITY [None]
  - HYPOACUSIS [None]
  - LIMB DISCOMFORT [None]
  - SKIN ULCER [None]
  - SKIN WARM [None]
